FAERS Safety Report 15291221 (Version 2)
Quarter: 2018Q3

REPORT INFORMATION
  Report Type: Report from Study
  Country: US (occurrence: US)
  Receive Date: 20180817
  Receipt Date: 20180914
  Transmission Date: 20181010
  Serious: Yes (Other)
  Sender: FDA-Public Use
  Company Number: US-ALLERGAN-1840004US

PATIENT
  Age: 68 Year
  Sex: Female

DRUGS (3)
  1. LINACLOTIDE 72?G CAP [Suspect]
     Active Substance: LINACLOTIDE
     Indication: DIVERTICULITIS
     Dosage: 72 ?G, QD
     Route: 048
     Dates: start: 201801
  2. LINACLOTIDE 72?G CAP [Suspect]
     Active Substance: LINACLOTIDE
     Indication: CONSTIPATION
  3. OPIOIDS [Concomitant]
     Active Substance: UNSPECIFIED INGREDIENT
     Indication: PAIN

REACTIONS (2)
  - Off label use [Unknown]
  - Shoulder arthroplasty [Unknown]

NARRATIVE: CASE EVENT DATE: 201801
